FAERS Safety Report 7166599-X (Version None)
Quarter: 2010Q4

REPORT INFORMATION
  Report Type: 
  Country: None (occurrence: None)
  Receive Date: 20101216
  Receipt Date: 20101214
  Transmission Date: 20110411
  Serious: Yes (Other)
  Sender: FDA-Public Use
  Company Number: US-BAXTER-2010BH030033

PATIENT
  Age: 54 Year
  Sex: Male
  Weight: 70 kg

DRUGS (4)
  1. NAFCILLIN SODIUM [Suspect]
     Indication: STAPHYLOCOCCAL BACTERAEMIA
     Route: 042
  2. VANCOMYCIN HCL [Suspect]
     Indication: STAPHYLOCOCCAL BACTERAEMIA
     Route: 042
  3. LEVOFLOXACIN [Concomitant]
     Indication: STAPHYLOCOCCAL BACTERAEMIA
     Route: 065
  4. PIPERACILLIN W/TAZOBACTAM [Concomitant]
     Indication: STAPHYLOCOCCAL BACTERAEMIA
     Route: 065

REACTIONS (3)
  - BACTERAEMIA [None]
  - CARDIAC ARREST [None]
  - RENAL FAILURE ACUTE [None]
